FAERS Safety Report 8273668-X (Version None)
Quarter: 2012Q2

REPORT INFORMATION
  Report Type: 
  Country: None (occurrence: None)
  Receive Date: 20120411
  Receipt Date: 20120229
  Transmission Date: 20120825
  Serious: No
  Sender: FDA-Public Use
  Company Number: US-TEVA-325497USA

PATIENT
  Age: 12 Year
  Sex: Male

DRUGS (3)
  1. NUVIGIL [Suspect]
     Indication: ATTENTION DEFICIT/HYPERACTIVITY DISORDER
     Route: 048
  2. INTUNIV [Concomitant]
  3. ABILIFY [Concomitant]

REACTIONS (2)
  - TIC [None]
  - OFF LABEL USE [None]
